FAERS Safety Report 16019263 (Version 2)
Quarter: 2019Q2

REPORT INFORMATION
  Report Type: Report from Study
  Country: US (occurrence: US)
  Receive Date: 20190228
  Receipt Date: 20190416
  Transmission Date: 20190711
  Serious: Yes (Hospitalization)
  Sender: FDA-Public Use
  Company Number: US-ACTELION-A-NJ2019-186851

PATIENT
  Age: 56 Year
  Sex: Female
  Weight: 85.1 kg

DRUGS (38)
  1. CLOPIDOGREL [Concomitant]
     Active Substance: CLOPIDOGREL BISULFATE
     Dosage: 75 MG
  2. VANCOMYCIN [Concomitant]
     Active Substance: VANCOMYCIN
  3. LIDOCAINE. [Concomitant]
     Active Substance: LIDOCAINE
  4. ASPIRIN. [Concomitant]
     Active Substance: ASPIRIN
     Dosage: 81 MG
  5. FENTANYL. [Concomitant]
     Active Substance: FENTANYL
  6. VELPHORO [Concomitant]
     Active Substance: FERRIC OXYHYDROXIDE
  7. IPRATROPIUM [Concomitant]
     Active Substance: IPRATROPIUM
  8. LORAZEPAM. [Concomitant]
     Active Substance: LORAZEPAM
  9. ONDANSETRON [Concomitant]
     Active Substance: ONDANSETRON
  10. TRAZODONE [Concomitant]
     Active Substance: TRAZODONE HYDROCHLORIDE
     Dosage: 100 MG
  11. CITALOPRAM [Concomitant]
     Active Substance: CITALOPRAM HYDROBROMIDE
  12. OPSUMIT [Suspect]
     Active Substance: MACITENTAN
     Indication: PULMONARY ARTERIAL HYPERTENSION
     Dosage: 10 MG, QD
     Route: 048
     Dates: start: 20151209
  13. ALBUTEROL HFA [Concomitant]
     Active Substance: ALBUTEROL SULFATE
     Dosage: 90 MCG
  14. GABAPENTIN. [Concomitant]
     Active Substance: GABAPENTIN
     Dosage: 100 MG
  15. HYDROXYZINE [Concomitant]
     Active Substance: HYDROXYZINE HYDROCHLORIDE
     Dosage: 50 MG
  16. MIDODRINE [Concomitant]
     Active Substance: MIDODRINE
     Dosage: 10 MG
  17. CALCIUM ACETATE. [Concomitant]
     Active Substance: CALCIUM ACETATE
  18. IODIXANOL. [Concomitant]
     Active Substance: IODIXANOL
  19. VITAMIN B COMPLEX W VITAMIN C + FOLIC ACID [Concomitant]
  20. ROPIVACAINE. [Concomitant]
     Active Substance: ROPIVACAINE HYDROCHLORIDE
  21. PROMETHAZINE [Concomitant]
     Active Substance: PROMETHAZINE\PROMETHAZINE HYDROCHLORIDE
     Dosage: 6.25 MG/5 ML
  22. MIDAZOLAM [Concomitant]
     Active Substance: MIDAZOLAM HYDROCHLORIDE
  23. RISPERIDONE. [Concomitant]
     Active Substance: RISPERIDONE
  24. TRIAMCINOLONE [Concomitant]
     Active Substance: TRIAMCINOLONE
  25. BUDESONIDE W/FORMOTEROL FUMARATE [Concomitant]
     Active Substance: BUDESONIDE\FORMOTEROL FUMARATE
     Dosage: 160 MCG
  26. INSULIN [Concomitant]
     Active Substance: INSULIN NOS
     Dosage: 100 UNIT/ML
  27. LATANOPROST. [Concomitant]
     Active Substance: LATANOPROST
  28. GLUCAGON. [Concomitant]
     Active Substance: GLUCAGON
  29. VENTOLIN HFA [Concomitant]
     Active Substance: ALBUTEROL SULFATE
     Dosage: 90 MCG
  30. NORCO [Concomitant]
     Active Substance: ACETAMINOPHEN\HYDROCODONE BITARTRATE
     Dosage: 7.5 TO 325 MG
  31. PRAVASTATIN. [Concomitant]
     Active Substance: PRAVASTATIN
     Dosage: 40 MG
  32. ESCITALOPRAM [Concomitant]
     Active Substance: ESCITALOPRAM OXALATE
  33. LACTULOSE. [Concomitant]
     Active Substance: LACTULOSE
  34. DEXTROSE. [Concomitant]
     Active Substance: DEXTROSE
  35. ACETAMINOPHEN. [Concomitant]
     Active Substance: ACETAMINOPHEN
  36. MORPHINE [Concomitant]
     Active Substance: MORPHINE
     Dosage: 2 MG
  37. MUPIROCIN. [Concomitant]
     Active Substance: MUPIROCIN
  38. PANTOPRAZOLE [Concomitant]
     Active Substance: PANTOPRAZOLE

REACTIONS (22)
  - Toe amputation [Recovered/Resolved]
  - Iliac artery perforation [Unknown]
  - Hyperparathyroidism secondary [Unknown]
  - Peripheral arterial occlusive disease [Unknown]
  - Arteriosclerotic gangrene [Unknown]
  - End stage renal disease [Unknown]
  - Haemodialysis [Unknown]
  - Tissue injury [Unknown]
  - Peripheral endarterectomy [Unknown]
  - Diabetes mellitus [Unknown]
  - Angiogram [Unknown]
  - Intermittent claudication [Unknown]
  - Vascular access malfunction [Unknown]
  - Angioplasty [Unknown]
  - Vascular stent stenosis [Recovering/Resolving]
  - Hypotension [Unknown]
  - Coronary artery disease [Unknown]
  - Anaemia [Unknown]
  - Blood glucose increased [Unknown]
  - Gangrene [Unknown]
  - Dialysis [Unknown]
  - Fistulogram [Unknown]

NARRATIVE: CASE EVENT DATE: 20180502
